FAERS Safety Report 10473297 (Version 1)
Quarter: 2014Q3

REPORT INFORMATION
  Report Type: Report from Study
  Country: US (occurrence: US)
  Receive Date: 20140924
  Receipt Date: 20140924
  Transmission Date: 20150326
  Serious: Yes (Hospitalization)
  Sender: FDA-Public Use
  Company Number: US-ACTELION-A-US2014-105436

PATIENT
  Age: 84 Year
  Sex: Female

DRUGS (2)
  1. MACITENTAN [Suspect]
     Active Substance: MACITENTAN
     Indication: PULMONARY ARTERIAL HYPERTENSION
     Dosage: 10 MG, UNK
     Route: 048
     Dates: start: 20140827
  2. TYVASO [Concomitant]
     Active Substance: TREPROSTINIL

REACTIONS (4)
  - Renal cancer [Unknown]
  - Pain [Unknown]
  - Hepatic cancer [Unknown]
  - Breast cancer [Unknown]
